FAERS Safety Report 7715193-8 (Version None)
Quarter: 2011Q3

REPORT INFORMATION
  Report Type: 
  Country: None (occurrence: None)
  Receive Date: 20110822
  Receipt Date: 20110805
  Transmission Date: 20111222
  Serious: Yes (Disabling)
  Sender: FDA-Public Use
  Company Number: 2011MA011391

PATIENT
  Age: 5 Year
  Sex: Male

DRUGS (6)
  1. RIFAMPICIN [Suspect]
     Indication: TUBERCULOSIS
     Dosage: 10 MG/KG;QD;PO
     Route: 048
  2. ISONIAZID [Suspect]
     Indication: TUBERCULOSIS
     Dosage: 5 MG/KG;QD;PO
     Route: 048
  3. PYRAZINAMIDE [Suspect]
     Dosage: 25 MG/KG;QD;PO
     Route: 048
  4. PREDNISOLONE [Suspect]
     Indication: TUBERCULOSIS
     Dosage: 2 MG/KG;QD;PO
     Route: 048
  5. PHENYTOIN [Suspect]
     Indication: TUBERCULOSIS
     Dosage: 10 MG/KG;QD;PO
     Route: 048
  6. ETHAMBUTOL HYDROCHLORIDE [Suspect]
     Indication: TUBERCULOSIS
     Dosage: 20 MG/KG;QD;PO
     Route: 048

REACTIONS (3)
  - OPTIC NEURITIS [None]
  - BLINDNESS TRANSIENT [None]
  - PARADOXICAL DRUG REACTION [None]
